FAERS Safety Report 13092797 (Version 1)
Quarter: 2017Q1

REPORT INFORMATION
  Report Type: Spontaneous
  Country: US (occurrence: US)
  Receive Date: 20170106
  Receipt Date: 20170106
  Transmission Date: 20170428
  Serious: No
  Sender: FDA-Public Use
  Company Number: US-JNJFOC-20161220034

PATIENT
  Age: 4 Year
  Sex: Male
  Weight: 16.33 kg

DRUGS (3)
  1. AZITHROMYCIN ANHYDROUS. [Concomitant]
     Active Substance: AZITHROMYCIN ANHYDROUS
     Indication: OROPHARYNGEAL PAIN
     Dosage: 1/2 - 1 TSP, 5 DAYS
     Route: 065
     Dates: start: 20161219
  2. CHILDRENS TYLENOL [Suspect]
     Active Substance: ACETAMINOPHEN
     Indication: PYREXIA
     Dosage: 1 1/2 TSP
     Route: 048
     Dates: start: 20161219
  3. AZITHROMYCIN ANHYDROUS. [Concomitant]
     Active Substance: AZITHROMYCIN ANHYDROUS
     Indication: COUGH
     Dosage: 1/2 - 1 TSP, 5 DAYS
     Route: 065
     Dates: start: 20161219

REACTIONS (1)
  - Hypersomnia [Not Recovered/Not Resolved]

NARRATIVE: CASE EVENT DATE: 20161220
